FAERS Safety Report 19220849 (Version 1)
Quarter: 2021Q2

REPORT INFORMATION
  Report Type: Spontaneous
  Country: AU (occurrence: AU)
  Receive Date: 20210505
  Receipt Date: 20210505
  Transmission Date: 20210717
  Serious: Yes (Other)
  Sender: FDA-Public Use
  Company Number: AU-SCILEX PHARMACEUTICALS INC.-2021SCX00014

PATIENT
  Age: 59 Year
  Sex: Female

DRUGS (8)
  1. LIDOCAINE. [Suspect]
     Active Substance: LIDOCAINE
     Dosage: 2000 UNK
     Route: 058
  2. METHADONE [Concomitant]
     Active Substance: METHADONE HYDROCHLORIDE
     Dosage: 5 MG, 2X/DAY
     Route: 065
  3. LIDOCAINE. [Suspect]
     Active Substance: LIDOCAINE
     Dosage: 1000 UNK
     Route: 058
  4. FENTANYL. [Concomitant]
     Active Substance: FENTANYL
     Dosage: CSCI
     Route: 058
  5. PREGABALIN. [Concomitant]
     Active Substance: PREGABALIN
     Dosage: 300 MG, 2X/DAY
  6. LIDOCAINE. [Suspect]
     Active Substance: LIDOCAINE
     Indication: PAIN
     Dosage: 500 MG, CONTINUOUS
     Route: 058
  7. LIDOCAINE. [Suspect]
     Active Substance: LIDOCAINE
     Dosage: 500 UNK
     Route: 058
  8. DEXAMETHASONE. [Concomitant]
     Active Substance: DEXAMETHASONE
     Dosage: WEANING DOSE SCHEDULE
     Route: 065

REACTIONS (1)
  - Psychotic disorder [Recovered/Resolved]
